FAERS Safety Report 23828964 (Version 1)
Quarter: 2024Q2

REPORT INFORMATION
  Report Type: Report from Study
  Country: DE (occurrence: DE)
  Receive Date: 20240508
  Receipt Date: 20240508
  Transmission Date: 20240715
  Serious: Yes (Other)
  Sender: FDA-Public Use
  Company Number: DE-BRISTOL-MYERS SQUIBB COMPANY-2024-070644

PATIENT

DRUGS (3)
  1. REYATAZ [Suspect]
     Active Substance: ATAZANAVIR SULFATE
     Indication: HIV infection
  2. LOPINAVIR [Suspect]
     Active Substance: LOPINAVIR
     Indication: HIV infection
  3. RITONAVIR [Suspect]
     Active Substance: RITONAVIR
     Indication: HIV infection

REACTIONS (1)
  - Hyperbilirubinaemia [Unknown]
